FAERS Safety Report 4530793-4 (Version None)
Quarter: 2004Q4

REPORT INFORMATION
  Report Type: 
  Country: None (occurrence: None)
  Receive Date: 20041216
  Receipt Date: 20041206
  Transmission Date: 20050328
  Serious: Yes (Hospitalization, Other)
  Sender: FDA-Public Use
  Company Number: 2004105532

PATIENT
  Age: 51 Year
  Sex: Male

DRUGS (3)
  1. CARDENALIN (DOXAZOSIN) [Suspect]
     Indication: ILL-DEFINED DISORDER
     Dosage: AROUND 56 MG, ORAL
     Route: 048
  2. ACE INHIBITOR NOS (ACE INHIBITOR NOS) [Suspect]
     Indication: ILL-DEFINED DISORDER
     Dosage: ORAL
     Route: 048
  3. NIFEDIPINE [Suspect]
     Indication: ILL-DEFINED DISORDER
     Dosage: ORAL
     Route: 048

REACTIONS (4)
  - SHOCK [None]
  - SNORING [None]
  - SUICIDE ATTEMPT [None]
  - THERAPY NON-RESPONDER [None]
